FAERS Safety Report 8522122-6 (Version None)
Quarter: 2012Q3

REPORT INFORMATION
  Report Type: 
  Country: None (occurrence: None)
  Receive Date: 20120709
  Receipt Date: 20120626
  Transmission Date: 20120928
  Serious: Yes (Death, Other)
  Sender: FDA-Public Use
  Company Number: 2012P1045413

PATIENT
  Age: 46 Year
  Sex: Female

DRUGS (3)
  1. ALBENDAZOLE (NO PREF. NAME) [Suspect]
     Indication: ECHINOCOCCIASIS
     Dosage: 400 MG; BID;PO
     Route: 048
     Dates: start: 20111124, end: 20111130
  2. CYCLOSPORINE [Concomitant]
  3. PROPRANOLOL HYDROCHLORIDE [Concomitant]

REACTIONS (16)
  - SEPTIC SHOCK [None]
  - ALOPECIA [None]
  - VITREOUS OPACITIES [None]
  - STAPHYLOCOCCUS TEST POSITIVE [None]
  - HEPATORENAL SYNDROME [None]
  - HYPOTENSION [None]
  - MUCOSAL INFLAMMATION [None]
  - ORAL CANDIDIASIS [None]
  - ESCHERICHIA URINARY TRACT INFECTION [None]
  - RENAL FAILURE ACUTE [None]
  - VOMITING [None]
  - PRERENAL FAILURE [None]
  - PANCYTOPENIA [None]
  - UVEITIS [None]
  - NAUSEA [None]
  - HERPES SIMPLEX [None]
